FAERS Safety Report 6646126-3 (Version None)
Quarter: 2010Q1

REPORT INFORMATION
  Report Type: 
  Country: None (occurrence: None)
  Receive Date: 20100323
  Receipt Date: 20100308
  Transmission Date: 20100710
  Serious: Yes (Hospitalization)
  Sender: FDA-Public Use
  Company Number: FR-JNJFOC-20100305925

PATIENT
  Sex: Female

DRUGS (8)
  1. TRAMADOL HCL [Suspect]
     Indication: PAIN
     Route: 065
  2. FLUINDIONE [Interacting]
     Indication: DRUG USE FOR UNKNOWN INDICATION
     Route: 065
  3. PERFALGAN [Suspect]
     Indication: PAIN
     Route: 042
  4. COVERSYL [Concomitant]
     Dosage: DAILY
  5. VASTEN [Concomitant]
     Dosage: DAILY
  6. VASTAREL [Concomitant]
  7. STILNOX [Concomitant]
     Dosage: 1 TABLET AT BED TIME
  8. ZANIDIP [Concomitant]
     Dosage: DAILY

REACTIONS (6)
  - DRUG INTERACTION [None]
  - HAEMOGLOBIN DECREASED [None]
  - INTERNATIONAL NORMALISED RATIO INCREASED [None]
  - PELVIC HAEMATOMA [None]
  - RECTAL HAEMORRHAGE [None]
  - VULVAL HAEMATOMA [None]
